FAERS Safety Report 7079132-8 (Version None)
Quarter: 2010Q4

REPORT INFORMATION
  Report Type: 
  Country: None (occurrence: None)
  Receive Date: 20101102
  Receipt Date: 20101026
  Transmission Date: 20110411
  Serious: Yes (Hospitalization)
  Sender: FDA-Public Use
  Company Number: A0876114A

PATIENT
  Sex: Male
  Weight: 63.2 kg

DRUGS (13)
  1. ADVAIR DISKUS 100/50 [Suspect]
     Indication: CHRONIC OBSTRUCTIVE PULMONARY DISEASE
     Dosage: 1PUFF TWICE PER DAY
     Route: 055
     Dates: start: 20020101
  2. FLOVENT [Suspect]
     Route: 055
     Dates: start: 20010101, end: 20020101
  3. SEREVENT [Suspect]
     Route: 055
     Dates: start: 20010101, end: 20020101
  4. LOVASTATIN [Concomitant]
  5. LISINOPRIL [Concomitant]
  6. DOXAZOSIN MESYLATE [Concomitant]
  7. CITALOPRAM HYDROBROMIDE [Concomitant]
  8. OMEPRAZOLE [Concomitant]
  9. ALBUTEROL [Concomitant]
     Dates: start: 20010101
  10. COMBIVENT [Concomitant]
     Dates: start: 20010101, end: 20010101
  11. VALTREX [Concomitant]
  12. ASTELIN [Concomitant]
  13. PROAIR HFA [Concomitant]

REACTIONS (23)
  - ATELECTASIS [None]
  - BRONCHITIS [None]
  - COLLAPSE OF LUNG [None]
  - DRY THROAT [None]
  - DYSPNOEA [None]
  - EXTRASKELETAL OSSIFICATION [None]
  - FAT NECROSIS [None]
  - LUNG HYPERINFLATION [None]
  - LUNG NEOPLASM [None]
  - LUNG WEDGE RESECTION [None]
  - NASOPHARYNGITIS [None]
  - OROPHARYNGEAL DISCOMFORT [None]
  - PAIN [None]
  - PLEURAL CALCIFICATION [None]
  - PLEURISY [None]
  - PNEUMOTHORAX [None]
  - PRODUCTIVE COUGH [None]
  - PULMONARY AIR LEAKAGE [None]
  - PULMONARY BULLA [None]
  - PULMONARY FIBROSIS [None]
  - PULMONARY GRANULOMA [None]
  - PYREXIA [None]
  - WHEEZING [None]
